FAERS Safety Report 8554285-0 (Version None)
Quarter: 2012Q3

REPORT INFORMATION
  Report Type: 
  Country: None (occurrence: None)
  Receive Date: 20120731
  Receipt Date: 20120720
  Transmission Date: 20120928
  Serious: Yes (Hospitalization, Other)
  Sender: FDA-Public Use
  Company Number: US-ELI_LILLY_AND_COMPANY-US201011005737

PATIENT
  Sex: Female

DRUGS (9)
  1. FORTEO [Suspect]
     Dosage: 20 UG, QD
     Route: 065
  2. THYROID TAB [Concomitant]
     Dosage: UNK
  3. FORTEO [Suspect]
     Dosage: 20 UG, QD
     Route: 065
  4. LIPITOR [Concomitant]
     Dosage: UNK
  5. ISOSORBIDE [Concomitant]
     Dosage: UNK
  6. FORTEO [Suspect]
     Dosage: 20 UG, QD
     Route: 065
  7. ASPIRIN [Concomitant]
     Dosage: 81 MG, UNK
  8. TOPROL-XL [Concomitant]
     Dosage: UNK
  9. FORTEO [Suspect]
     Indication: OSTEOPOROSIS
     Dosage: 20 UG, QD
     Route: 065
     Dates: start: 20101027

REACTIONS (15)
  - ATRIAL FIBRILLATION [None]
  - BACK PAIN [None]
  - CONSTIPATION [None]
  - BLOOD PRESSURE INCREASED [None]
  - TREMOR [None]
  - CATARACT [None]
  - DYSKINESIA [None]
  - HYPOACUSIS [None]
  - DIZZINESS [None]
  - DYSSTASIA [None]
  - VISUAL ACUITY REDUCED [None]
  - BLOOD PRESSURE DECREASED [None]
  - BRONCHITIS [None]
  - ANGINA PECTORIS [None]
  - FEEDING DISORDER [None]
